FAERS Safety Report 18153042 (Version 7)
Quarter: 2025Q1

REPORT INFORMATION
  Report Type: Report from Study
  Country: US (occurrence: US)
  Receive Date: 20200815
  Receipt Date: 20250128
  Transmission Date: 20250408
  Serious: Yes (Other)
  Sender: TAKEDA
  Company Number: US-SHIRE-US202026231

PATIENT
  Age: 69 Year
  Sex: Female
  Weight: 56 kg

DRUGS (27)
  1. HUMAN IMMUNOGLOBULIN G [Suspect]
     Active Substance: HUMAN IMMUNOGLOBULIN G
     Indication: Immunodeficiency common variable
     Dosage: 25 GRAM, Q2WEEKS
     Dates: start: 20160828
  2. HUMAN IMMUNOGLOBULIN G [Suspect]
     Active Substance: HUMAN IMMUNOGLOBULIN G
     Dosage: 25 GRAM, Q4WEEKS
  3. FLOVENT [Concomitant]
     Active Substance: FLUTICASONE PROPIONATE
     Indication: Product used for unknown indication
  4. VITAMIN C [Concomitant]
     Active Substance: ASCORBIC ACID
     Indication: Product used for unknown indication
  5. ACETAMINOPHEN [Concomitant]
     Active Substance: ACETAMINOPHEN
     Indication: Product used for unknown indication
  6. DIPHENHYDRAMINE HYDROCHLORIDE [Concomitant]
     Active Substance: DIPHENHYDRAMINE HYDROCHLORIDE
     Indication: Product used for unknown indication
  7. SODIUM CHLORIDE [Concomitant]
     Active Substance: SODIUM CHLORIDE
     Indication: Product used for unknown indication
  8. EPINEPHRINE [Concomitant]
     Active Substance: EPINEPHRINE
     Indication: Product used for unknown indication
  9. ALBUTEROL [Concomitant]
     Active Substance: ALBUTEROL
     Indication: Product used for unknown indication
  10. ALEVE [Concomitant]
     Active Substance: NAPROXEN SODIUM
     Indication: Product used for unknown indication
  11. LEXAPRO [Concomitant]
     Active Substance: ESCITALOPRAM OXALATE
     Indication: Product used for unknown indication
  12. OXYGEN [Concomitant]
     Active Substance: OXYGEN
     Indication: Product used for unknown indication
  13. UMECLIDINIUM BROMIDE\VILANTEROL TRIFENATATE [Concomitant]
     Active Substance: UMECLIDINIUM BROMIDE\VILANTEROL TRIFENATATE
     Indication: Product used for unknown indication
  14. MIRALAX [Concomitant]
     Active Substance: POLYETHYLENE GLYCOL 3350
     Indication: Product used for unknown indication
  15. HYDROCHLOROTHIAZIDE\TRIAMTERENE [Concomitant]
     Active Substance: HYDROCHLOROTHIAZIDE\TRIAMTERENE
     Indication: Product used for unknown indication
  16. VIVELLE-DOT [Concomitant]
     Active Substance: ESTRADIOL
  17. HEPARIN [Concomitant]
     Active Substance: HEPARIN SODIUM
  18. VITAMIN D3 [Concomitant]
     Active Substance: CHOLECALCIFEROL
  19. AZITHROMYCIN [Concomitant]
     Active Substance: AZITHROMYCIN
  20. ANORO ELLIPTA [Concomitant]
     Active Substance: UMECLIDINIUM BROMIDE\VILANTEROL TRIFENATATE
  21. ALBUTEROL SULFATE [Concomitant]
     Active Substance: ALBUTEROL SULFATE
  22. IVERMECTIN [Concomitant]
     Active Substance: IVERMECTIN
  23. HERBALS\TURMERIC [Concomitant]
     Active Substance: HERBALS\TURMERIC
  24. Lmx [Concomitant]
  25. PREDNISONE [Concomitant]
     Active Substance: PREDNISONE
  26. TRELEGY ELLIPTA [Concomitant]
     Active Substance: FLUTICASONE FUROATE\UMECLIDINIUM BROMIDE\VILANTEROL TRIFENATATE
  27. DOXYCYCLINE HYCLATE [Concomitant]
     Active Substance: DOXYCYCLINE HYCLATE

REACTIONS (19)
  - Interstitial lung disease [Unknown]
  - Gait disturbance [Unknown]
  - Infusion related reaction [Unknown]
  - Inflammation [Unknown]
  - Diffuse idiopathic pulmonary neuroendocrine cell hyperplasia [Unknown]
  - Ear, nose and throat infection [Recovering/Resolving]
  - Infection [Unknown]
  - Fungal infection [Unknown]
  - Upper respiratory tract infection [Unknown]
  - Pain [Unknown]
  - Hot flush [Unknown]
  - Oxygen saturation decreased [Unknown]
  - Infusion site extravasation [Unknown]
  - Arthralgia [Unknown]
  - Dyspnoea [Unknown]
  - Infusion site pain [Unknown]
  - Pyrexia [Unknown]
  - Fatigue [Unknown]
  - Chills [Unknown]

NARRATIVE: CASE EVENT DATE: 20250109
